FAERS Safety Report 4510633-X (Version None)
Quarter: 2004Q4

REPORT INFORMATION
  Report Type: 
  Country: None (occurrence: None)
  Receive Date: 20041122
  Receipt Date: 20041108
  Transmission Date: 20050328
  Serious: Yes (Hospitalization)
  Sender: FDA-Public Use
  Company Number: 2004-122136-NL

PATIENT
  Age: 80 Year
  Sex: Male

DRUGS (14)
  1. DEXAMETHASONE [Suspect]
     Dosage: MC
     Route: 048
     Dates: start: 20040501
  2. ARTHROTEC [Suspect]
     Dosage: DF
     Route: 048
     Dates: end: 20041015
  3. METOPROLOL [Concomitant]
  4. RANITIDINE [Concomitant]
  5. MEBEVERINE [Concomitant]
  6. LEVOTHYROXINE SODIUM [Concomitant]
  7. ALBUTEROL [Concomitant]
  8. FINASTERIDE [Concomitant]
  9. FRUSENE [Concomitant]
  10. CARBAMAZEPINE [Concomitant]
  11. PERINDOPRIL [Concomitant]
  12. NITROGLYCERIN [Concomitant]
  13. SIMVASTATIN [Concomitant]
  14. TRAMADOL [Concomitant]

REACTIONS (2)
  - DUODENAL ULCER PERFORATION [None]
  - RECTAL HAEMORRHAGE [None]
